FAERS Safety Report 9003445 (Version 1)
Quarter: 2013Q1

REPORT INFORMATION
  Report Type: Spontaneous
  Country: US (occurrence: US)
  Receive Date: 20130108
  Receipt Date: 20130108
  Transmission Date: 20140127
  Serious: Yes (Death)
  Sender: FDA-Public Use
  Company Number: PHHY2013US001653

PATIENT
  Age: 56 Year
  Sex: Male

DRUGS (3)
  1. VORICONAZOLE [Suspect]
     Indication: CANDIDA INFECTION
  2. PREDNISONE [Concomitant]
     Indication: LABYRINTHITIS
  3. MECLIZINE [Concomitant]
     Indication: LABYRINTHITIS

REACTIONS (2)
  - Multi-organ failure [Fatal]
  - Drug ineffective [Unknown]
